FAERS Safety Report 19117106 (Version 1)
Quarter: 2021Q2

REPORT INFORMATION
  Report Type: Spontaneous
  Country: DE (occurrence: DE)
  Receive Date: 20210409
  Receipt Date: 20210409
  Transmission Date: 20210717
  Serious: Yes (Other)
  Sender: FDA-Public Use
  Company Number: DE-PURDUE-USA-2020-0170119

PATIENT
  Age: 51 Year
  Sex: Male

DRUGS (3)
  1. HYDROMORPHONE HCL (SIMILAR TO 19?892) [Suspect]
     Active Substance: HYDROMORPHONE HYDROCHLORIDE
     Indication: PRODUCT USED FOR UNKNOWN INDICATION
     Dosage: UNK [STRENGTH 8 MG]
     Route: 065
  2. TRAZODONE [Concomitant]
     Active Substance: TRAZODONE HYDROCHLORIDE
     Dosage: UNK [STRENGTH 8 MG]
  3. TREMFYA [Suspect]
     Active Substance: GUSELKUMAB
     Indication: PRODUCT USED FOR UNKNOWN INDICATION
     Dosage: UNK [100 ML]
     Route: 065

REACTIONS (4)
  - Back pain [Unknown]
  - Psoriatic arthropathy [Unknown]
  - Ill-defined disorder [Unknown]
  - Hypertension [Unknown]
